FAERS Safety Report 25466521 (Version 3)
Quarter: 2025Q3

REPORT INFORMATION
  Report Type: Report from Study
  Country: EU (occurrence: EU)
  Receive Date: 20250623
  Receipt Date: 20250930
  Transmission Date: 20251021
  Serious: Yes (Hospitalization, Other)
  Sender: TAKEDA
  Company Number: EU-TAKEDA-2025TUS040224

PATIENT
  Age: 55 Year
  Sex: Female

DRUGS (11)
  1. HUMAN IMMUNOGLOBULIN G\HYALURONIDASE RECOMBINANT HUMAN [Suspect]
     Active Substance: HUMAN IMMUNOGLOBULIN G\HYALURONIDASE (HUMAN RECOMBINANT)
     Indication: Hypogammaglobulinaemia
  2. HUMAN IMMUNOGLOBULIN G\HYALURONIDASE RECOMBINANT HUMAN [Suspect]
     Active Substance: HUMAN IMMUNOGLOBULIN G\HYALURONIDASE (HUMAN RECOMBINANT)
  3. HUMAN IMMUNOGLOBULIN G\HYALURONIDASE RECOMBINANT HUMAN [Suspect]
     Active Substance: HUMAN IMMUNOGLOBULIN G\HYALURONIDASE (HUMAN RECOMBINANT)
  4. PREDNISOLONE [Concomitant]
     Active Substance: PREDNISOLONE
  5. EMEND [Concomitant]
     Active Substance: APREPITANT
  6. CYCLIZINE [Concomitant]
     Active Substance: CYCLIZINE
  7. ALLOPURINOL [Concomitant]
     Active Substance: ALLOPURINOL
  8. SULFAMETHOXAZOLE\TRIMETHOPRIM [Concomitant]
     Active Substance: SULFAMETHOXAZOLE\TRIMETHOPRIM
  9. OMEPRAZOLE [Concomitant]
     Active Substance: OMEPRAZOLE
  10. Sertral [Concomitant]
     Dosage: 50 MILLIGRAM, QD
  11. FAMVIR [Concomitant]
     Active Substance: FAMCICLOVIR
     Dosage: 500 MILLIGRAM, BID

REACTIONS (6)
  - Pneumonia [Unknown]
  - Herpes zoster [Unknown]
  - Mass [Unknown]
  - Infusion site pruritus [Recovered/Resolved]
  - Infusion site erythema [Unknown]
  - Headache [Unknown]

NARRATIVE: CASE EVENT DATE: 20250418
